FAERS Safety Report 23160295 (Version 1)
Quarter: 2023Q4

REPORT INFORMATION
  Report Type: Spontaneous
  Country: US (occurrence: None)
  Receive Date: 20231108
  Receipt Date: 20231108
  Transmission Date: 20240110
  Serious: Yes (Life-Threatening)
  Sender: FDA-Public Use
  Company Number: None

PATIENT
  Age: 73 Year
  Sex: Female

DRUGS (1)
  1. BOSULIF [Suspect]
     Active Substance: BOSUTINIB MONOHYDRATE
     Dosage: 400MG QD ORAL
     Route: 048

REACTIONS (2)
  - Cerebrovascular accident [None]
  - Intestinal obstruction [None]

NARRATIVE: CASE EVENT DATE: 20200113
